FAERS Safety Report 7468253-3 (Version None)
Quarter: 2011Q2

REPORT INFORMATION
  Report Type: 
  Country: None (occurrence: None)
  Receive Date: 20110509
  Receipt Date: 20110504
  Transmission Date: 20111010
  Serious: Yes (Hospitalization)
  Sender: FDA-Public Use
  Company Number: FR-CEPHALON-2011002244

PATIENT
  Sex: Male
  Weight: 70 kg

DRUGS (9)
  1. DILTIAZEM [Concomitant]
     Dates: start: 20000101
  2. CERIS [Concomitant]
     Dates: start: 20000101
  3. PRAVASTATIN SODIUM [Concomitant]
     Dates: start: 20050101
  4. ZOPHREN [Concomitant]
     Dates: start: 20110110, end: 20110111
  5. PIASCLEDINE [Concomitant]
     Dates: start: 20000101
  6. BRICANYL [Concomitant]
     Dates: start: 20110111, end: 20110111
  7. TREANDA [Suspect]
     Route: 042
     Dates: start: 20101115
  8. RITUXIMAB [Suspect]
     Route: 042
     Dates: start: 20101115
  9. ATROVENT [Concomitant]
     Dates: start: 20110111, end: 20110111

REACTIONS (1)
  - TREMOR [None]
